FAERS Safety Report 10555586 (Version 10)
Quarter: 2016Q3

REPORT INFORMATION
  Report Type: Spontaneous
  Country: CA (occurrence: CA)
  Receive Date: 20141030
  Receipt Date: 20160823
  Transmission Date: 20161109
  Serious: Yes (Other)
  Sender: FDA-Public Use
  Company Number: CA-GSKJP-KK201413854GSK1550188SC003

PATIENT
  Sex: Female
  Weight: 70 kg

DRUGS (4)
  1. BENLYSTA [Suspect]
     Active Substance: BELIMUMAB
     Dosage: UNK
     Route: 042
     Dates: start: 20140424
  2. BENLYSTA [Suspect]
     Active Substance: BELIMUMAB
     Dosage: 680 MG, Z
     Route: 042
     Dates: start: 20140424
  3. BENLYSTA [Suspect]
     Active Substance: BELIMUMAB
     Indication: SYSTEMIC LUPUS ERYTHEMATOSUS
     Dosage: 640 MG, WEEKS 0, 2, 4 WEEKS THEN EVERY 4 WEEKS
     Route: 042
     Dates: start: 20140424, end: 20141017
  4. BENLYSTA [Suspect]
     Active Substance: BELIMUMAB
     Dosage: 680 MG, UNK
     Route: 042
     Dates: start: 20140211

REACTIONS (10)
  - Joint swelling [Unknown]
  - Pruritus [Not Recovered/Not Resolved]
  - Nausea [Recovered/Resolved]
  - Neuropsychiatric lupus [Not Recovered/Not Resolved]
  - Nasopharyngitis [Unknown]
  - Influenza [Unknown]
  - Visual acuity reduced [Not Recovered/Not Resolved]
  - Bone disorder [Not Recovered/Not Resolved]
  - Drug ineffective [Not Recovered/Not Resolved]
  - Mitral valve prolapse [Unknown]
